FAERS Safety Report 4808621-9 (Version None)
Quarter: 2005Q4

REPORT INFORMATION
  Report Type: 
  Country: None (occurrence: None)
  Receive Date: 20051021
  Receipt Date: 20050202
  Transmission Date: 20060501
  Serious: No
  Sender: FDA-Public Use
  Company Number: DE_050215188

PATIENT
  Age: 31 Year
  Sex: Male

DRUGS (3)
  1. ZYPREXA [Suspect]
     Indication: SCHIZOPHRENIA
     Dosage: 30 MG DAY
     Dates: start: 20040101
  2. LORAZEPAM [Concomitant]
  3. NEUROCIL (LEVOMEPROMAZINE MALEATE) [Concomitant]

REACTIONS (3)
  - EOSINOPHILIA [None]
  - OVERDOSE [None]
  - WHITE BLOOD CELL COUNT INCREASED [None]
